FAERS Safety Report 10701062 (Version 3)
Quarter: 2015Q1

REPORT INFORMATION
  Report Type: Spontaneous
  Country: MX (occurrence: MX)
  Receive Date: 20150109
  Receipt Date: 20150224
  Transmission Date: 20150721
  Serious: Yes (Hospitalization)
  Sender: FDA-Public Use
  Company Number: PHHY2015MX001361

PATIENT
  Sex: Male

DRUGS (1)
  1. CICLOSPORIN [Suspect]
     Active Substance: CYCLOSPORINE
     Indication: PSORIASIS
     Dosage: 100 MG BID (1 IN MORNING AND 1 IN THE AFTERNOON)
     Route: 065
     Dates: start: 201412, end: 20141221

REACTIONS (4)
  - Abdominal discomfort [Recovered/Resolved]
  - Poisoning [Recovered/Resolved]
  - Psoriasis [Not Recovered/Not Resolved]
  - Diarrhoea [Recovered/Resolved]
